FAERS Safety Report 10098060 (Version 1)
Quarter: 2014Q2

REPORT INFORMATION
  Report Type: Spontaneous
  Country: US (occurrence: US)
  Receive Date: 20140423
  Receipt Date: 20140423
  Transmission Date: 20141212
  Serious: Yes (Disabling)
  Sender: FDA-Public Use
  Company Number: US-ASTRAZENECA-2014SE26235

PATIENT
  Sex: Female

DRUGS (2)
  1. SYMBICORT [Suspect]
     Route: 055
     Dates: start: 2013
  2. MANY DIFFERENT BREATHING MEDICATIONS [Concomitant]

REACTIONS (1)
  - Disability [Unknown]
